FAERS Safety Report 8998366 (Version 1)
Quarter: 2013Q1

REPORT INFORMATION
  Report Type: Spontaneous
  Country: US (occurrence: US)
  Receive Date: 20130105
  Receipt Date: 20130105
  Transmission Date: 20140127
  Serious: No
  Sender: FDA-Public Use
  Company Number: US-JNJFOC-20121208786

PATIENT
  Sex: Male

DRUGS (5)
  1. INVEGA SUSTENNA [Suspect]
     Indication: SCHIZOPHRENIA
     Route: 030
  2. HYDROXYZINE [Concomitant]
     Route: 048
  3. SIMVASTIN [Concomitant]
     Route: 048
  4. DEPAKOTE [Concomitant]
     Route: 048
  5. BUSPAR [Concomitant]
     Route: 048

REACTIONS (1)
  - Drug dose omission [Recovered/Resolved]
